FAERS Safety Report 23316415 (Version 3)
Quarter: 2024Q4

REPORT INFORMATION
  Report Type: Spontaneous
  Country: US (occurrence: US)
  Receive Date: 20231219
  Receipt Date: 20241017
  Transmission Date: 20250115
  Serious: No
  Sender: ROCHE
  Company Number: US-ROCHE-3452508

PATIENT
  Age: 32 Year
  Sex: Male

DRUGS (6)
  1. HEMLIBRA [Suspect]
     Active Substance: EMICIZUMAB-KXWH
     Indication: Factor VIII deficiency
     Dosage: 150 MG/ML
     Route: 058
     Dates: start: 202212
  2. HEMLIBRA [Suspect]
     Active Substance: EMICIZUMAB-KXWH
     Dosage: STRENGTH-60 MG/0.4 ML
     Route: 058
     Dates: start: 202212
  3. HEMLIBRA [Suspect]
     Active Substance: EMICIZUMAB-KXWH
     Dosage: STRENGTH- 150MG/ML, 60 MG/0.4 ML
     Route: 058
     Dates: start: 201406
  4. HEMLIBRA [Suspect]
     Active Substance: EMICIZUMAB-KXWH
     Dosage: STRENGTH- 150MG/ML, 60 MG/0.4 ML
     Route: 058
     Dates: start: 201406
  5. HEMLIBRA [Suspect]
     Active Substance: EMICIZUMAB-KXWH
     Dosage: 150 MG/ML
     Route: 058
     Dates: start: 201406
  6. HEMLIBRA [Suspect]
     Active Substance: EMICIZUMAB-KXWH
     Dosage: 150 MG/ML
     Route: 058
     Dates: start: 201406

REACTIONS (2)
  - Haemorrhage [Unknown]
  - Fungal infection [Unknown]

NARRATIVE: CASE EVENT DATE: 20231021
